FAERS Safety Report 18806603 (Version 1)
Quarter: 2021Q1

REPORT INFORMATION
  Report Type: Spontaneous
  Country: JP (occurrence: JP)
  Receive Date: 20210129
  Receipt Date: 20210129
  Transmission Date: 20210419
  Serious: Yes (Death, Other)
  Sender: FDA-Public Use
  Company Number: JP-JAZZ-2021-JP-001332

PATIENT
  Age: 51 Year
  Sex: Female
  Weight: 55.2 kg

DRUGS (4)
  1. DEFITELIO [Suspect]
     Active Substance: DEFIBROTIDE SODIUM
     Dosage: 12.5 MG/KG DAILY
     Route: 042
     Dates: start: 20200612, end: 20200622
  2. NAFAMOSTAT [Concomitant]
     Active Substance: NAFAMOSTAT
     Indication: PRODUCT USED FOR UNKNOWN INDICATION
     Dosage: UNK
     Dates: start: 20200516, end: 20200603
  3. DEFITELIO [Suspect]
     Active Substance: DEFIBROTIDE SODIUM
     Indication: VENOOCCLUSIVE LIVER DISEASE
     Dosage: 25 MG/KG DAILY
     Route: 042
     Dates: start: 20200505, end: 20200602
  4. DEFITELIO [Suspect]
     Active Substance: DEFIBROTIDE SODIUM
     Dosage: 12.5 MG/KG DAILY
     Route: 042
     Dates: start: 20200605, end: 20200609

REACTIONS (7)
  - Incision site haemorrhage [Unknown]
  - Oesophageal ulcer [Recovered/Resolved]
  - Hypotension [Unknown]
  - Off label use [Unknown]
  - Meningitis bacterial [Fatal]
  - Sepsis [Fatal]
  - Gastric ulcer [Recovered/Resolved]

NARRATIVE: CASE EVENT DATE: 20200505
